FAERS Safety Report 4417388-8 (Version None)
Quarter: 2004Q2

REPORT INFORMATION
  Report Type: 
  Country: None (occurrence: None)
  Receive Date: 20040629
  Receipt Date: 20040421
  Transmission Date: 20050107
  Serious: Yes (Hospitalization)
  Sender: FDA-Public Use
  Company Number: USA040465623

PATIENT
  Age: 55 Year
  Sex: Female
  Weight: 86 kg

DRUGS (7)
  1. HUMULIN N [Suspect]
     Indication: DIABETES MELLITUS
     Dosage: 15 U AT BEDTIME
     Dates: start: 19940101
  2. HUMALOG [Suspect]
     Indication: DIABETES MELLITUS
     Dosage: 17 U/3 DAY
     Dates: start: 20031201
  3. PHENTERMINE [Concomitant]
  4. FENFLURAMINE [Concomitant]
  5. GLIMEPIRIDE [Concomitant]
  6. PIOGLITAZONE HYDROCHLORIDE [Concomitant]
  7. INSULINE GLARGINE [Concomitant]

REACTIONS (15)
  - ABDOMINAL DISTENSION [None]
  - ANGINA PECTORIS [None]
  - ANGIOPLASTY [None]
  - AUTOIMMUNE THYROIDITIS [None]
  - BLOOD GLUCOSE INCREASED [None]
  - CARDIAC FAILURE [None]
  - CARDIAC MURMUR [None]
  - CHOLECYSTECTOMY [None]
  - DIALYSIS [None]
  - HYSTERECTOMY [None]
  - MITRAL VALVE PROLAPSE [None]
  - MUSCLE CRAMP [None]
  - MYOCARDIAL INFARCTION [None]
  - OEDEMA PERIPHERAL [None]
  - PULMONARY HYPERTENSION [None]
